FAERS Safety Report 9747136 (Version 2)
Quarter: 2014Q1

REPORT INFORMATION
  Report Type: Spontaneous
  Country: IT (occurrence: IT)
  Receive Date: 20131211
  Receipt Date: 20140126
  Transmission Date: 20141002
  Serious: Yes (Hospitalization)
  Sender: FDA-Public Use
  Company Number: IT-BRISTOL-MYERS SQUIBB COMPANY-19874445

PATIENT
  Age: 89 Year
  Sex: Male

DRUGS (4)
  1. COUMADIN TABS 5 MG [Suspect]
     Indication: DEEP VEIN THROMBOSIS
     Dosage: 1DF: 1UNIT
     Route: 048
     Dates: start: 20120901, end: 20131104
  2. TRIATEC [Concomitant]
     Indication: HYPERTENSION
     Dosage: TRIATEC 2.5MG TABS
  3. LASIX [Concomitant]
     Indication: HYPERTENSION
     Dosage: 25MG TABS
  4. KCL RETARD [Concomitant]
     Dosage: 600MG TABS

REACTIONS (2)
  - International normalised ratio increased [Unknown]
  - Atrial fibrillation [Unknown]
